FAERS Safety Report 8286756 (Version 5)
Quarter: 2012Q4

REPORT INFORMATION
  Report Type: Report from Study
  Country: JP (occurrence: JP)
  Receive Date: 20111213
  Receipt Date: 20120927
  Transmission Date: 20130627
  Serious: Yes (Death, Other)
  Sender: FDA-Public Use
  Company Number: PHHY2011JP49867

PATIENT
  Age: 46 Year
  Sex: Male

DRUGS (15)
  1. AFINITOR [Suspect]
     Indication: METASTATIC RENAL CELL CARCINOMA
     Dosage: 10 mg, daily
     Route: 048
     Dates: start: 20110131, end: 20110917
  2. ZOMETA [Suspect]
     Indication: METASTATIC RENAL CELL CARCINOMA
     Dosage: UNK UKN, UNK
     Route: 041
     Dates: start: 20110208, end: 20110519
  3. ZOMETA [Suspect]
     Dosage: UNK UKN, UNK
     Route: 041
  4. MELOXICAM [Concomitant]
     Indication: METASTATIC RENAL CELL CARCINOMA
     Dosage: 10 mg, UNK
     Route: 048
     Dates: start: 20110201, end: 20110917
  5. OXYCONTIN [Concomitant]
     Indication: METASTATIC RENAL CELL CARCINOMA
     Dosage: 50 mg, UNK
     Route: 048
     Dates: start: 20101220, end: 20110917
  6. TRYPTANOL [Concomitant]
     Dosage: 75 mg, UNK
     Route: 048
     Dates: start: 20101207, end: 20110917
  7. PAXIL [Concomitant]
     Dosage: 10 mg, UNK
     Route: 048
     Dates: start: 20101207, end: 20110917
  8. ROHYPNOL [Concomitant]
     Dosage: 2 mg, UNK
     Route: 048
     Dates: start: 20101207, end: 20110917
  9. PARIET [Concomitant]
     Dosage: 10 mg, UNK
     Route: 048
     Dates: start: 20101215, end: 20110917
  10. MYSLEE [Concomitant]
     Dosage: 10 mg, UNK
     Route: 048
     Dates: start: 20101207, end: 20110917
  11. LYRICA [Concomitant]
     Indication: METASTATIC RENAL CELL CARCINOMA
     Dosage: 300 mg, UNK
     Route: 048
     Dates: start: 20101217, end: 20110917
  12. RISPERDAL [Concomitant]
     Dosage: 1 mg, UNK
     Route: 048
     Dates: start: 20110104, end: 20110917
  13. RIVOTRIL [Concomitant]
     Dosage: 0.5 mg, UNK
     Route: 048
     Dates: start: 20110104, end: 20110917
  14. ACETYLOL [Concomitant]
     Indication: PROPHYLAXIS
     Dosage: UNK UKN, UNK
     Route: 065
     Dates: start: 20110131, end: 20110917
  15. MYSER [Concomitant]
     Indication: PROPHYLAXIS
     Dosage: UNK UKN, UNK
     Route: 065
     Dates: start: 20110131, end: 20110917

REACTIONS (5)
  - Neoplasm progression [Fatal]
  - Malignant neoplasm progression [Fatal]
  - Haemoglobin decreased [Not Recovered/Not Resolved]
  - Atelectasis [Unknown]
  - Pneumonia [Recovered/Resolved]
